FAERS Safety Report 12228647 (Version 1)
Quarter: 2016Q1

REPORT INFORMATION
  Report Type: Spontaneous
  Country: None (occurrence: None)
  Receive Date: 20160331
  Receipt Date: 20160331
  Transmission Date: 20160526
  Serious: No
  Sender: FDA-Public Use
  Company Number: None

PATIENT
  Age: 18 Year
  Sex: Female
  Weight: 57.61 kg

DRUGS (2)
  1. NEXPLANON [Concomitant]
     Active Substance: ETONOGESTREL
  2. NEXPLANON [Suspect]
     Active Substance: ETONOGESTREL

REACTIONS (1)
  - Lactation puerperal increased [None]

NARRATIVE: CASE EVENT DATE: 20160309
